FAERS Safety Report 8496431 (Version 2)
Quarter: 2013Q2

REPORT INFORMATION
  Report Type: Spontaneous
  Country: ES (occurrence: None)
  Receive Date: 20120330
  Receipt Date: 20130408
  Transmission Date: 20140414
  Serious: Yes (Other)
  Sender: FDA-Public Use
  Company Number: 2011ES0252

PATIENT
  Age: 1 Year
  Sex: Female
  Weight: 13 kg

DRUGS (4)
  1. ANAKINRA [Suspect]
     Indication: JUVENILE IDIOPATHIC ARTHRITIS
     Dosage: (1 MG/KG)
     Dates: start: 20110801, end: 20110815
  2. PREDNISONE [Concomitant]
  3. OMEPRAZOL (OMEPRAZOL) [Concomitant]
  4. GLUTAFERRO (FERROUS GLUTAMATE) [Concomitant]

REACTIONS (1)
  - Transaminases increased [None]
